FAERS Safety Report 17591758 (Version 1)
Quarter: 2020Q1

REPORT INFORMATION
  Report Type: Spontaneous
  Country: US (occurrence: US)
  Receive Date: 20200327
  Receipt Date: 20200327
  Transmission Date: 20200409
  Serious: Yes (Other)
  Sender: FDA-Public Use
  Company Number: US-PFIZER INC-2020125612

PATIENT
  Age: 50 Year
  Sex: Female

DRUGS (20)
  1. BACLOFEN. [Interacting]
     Active Substance: BACLOFEN
     Dosage: UNK
     Route: 048
  2. PANTOPRAZOLE [Concomitant]
     Active Substance: PANTOPRAZOLE
     Indication: PREMEDICATION
     Dosage: UNK
  3. BACLOFEN. [Interacting]
     Active Substance: BACLOFEN
     Indication: MUSCLE RELAXANT THERAPY
     Dosage: UNK (HIGH DOSE)
     Route: 037
  4. KETAMINE HCL [Interacting]
     Active Substance: KETAMINE HYDROCHLORIDE
     Dosage: UNK (INFUSION EVERY 6 MONTHS)
     Route: 042
  5. DANTROLENE. [Concomitant]
     Active Substance: DANTROLENE SODIUM
     Dosage: UNK
  6. GLYCOPYRROLATE [GLYCOPYRRONIUM BROMIDE] [Concomitant]
     Active Substance: GLYCOPYRROLATE
     Indication: PREMEDICATION
     Dosage: UNK
  7. LOSARTAN. [Concomitant]
     Active Substance: LOSARTAN
     Dosage: UNK
  8. RANITIDINE. [Concomitant]
     Active Substance: RANITIDINE
     Dosage: UNK
  9. MIDAZOLAM. [Concomitant]
     Active Substance: MIDAZOLAM
     Indication: PREMEDICATION
     Dosage: UNK
  10. KETAMINE HCL [Interacting]
     Active Substance: KETAMINE HYDROCHLORIDE
     Dosage: UNK (10 MG/H AND WAS INCREASED BY 10 MG/H EVERY 2 HOURS UNTIL A MAXIMUM RATE OF 40 MG/H WAS REACHED)
     Route: 042
  11. METOCLOPRAMIDE. [Concomitant]
     Active Substance: METOCLOPRAMIDE
     Dosage: UNK
  12. APIXABAN [Concomitant]
     Active Substance: APIXABAN
     Dosage: UNK
  13. KETOROLAC [Concomitant]
     Active Substance: KETOROLAC TROMETHAMINE
     Dosage: UNK
  14. KETAMINE HCL [Suspect]
     Active Substance: KETAMINE HYDROCHLORIDE
     Indication: COMPLEX REGIONAL PAIN SYNDROME
     Dosage: UNK (5 DAYINFUSION THERAPY)
     Route: 042
  15. KETAMINE HCL [Interacting]
     Active Substance: KETAMINE HYDROCHLORIDE
     Dosage: UNK (BOOSTER KETAMINE INFUSIONS EVERY 2 MONTHS FOR 3 DAYS)
     Route: 042
  16. TIZANIDINE. [Concomitant]
     Active Substance: TIZANIDINE
     Dosage: UNK
  17. TOPIRAMATE. [Concomitant]
     Active Substance: TOPIRAMATE
     Dosage: UNK
  18. ONDANSETRON [Concomitant]
     Active Substance: ONDANSETRON
     Dosage: UNK
  19. ROSUVASTATIN. [Concomitant]
     Active Substance: ROSUVASTATIN
     Dosage: UNK
  20. DIPHENHYDRAMINE. [Concomitant]
     Active Substance: DIPHENHYDRAMINE
     Indication: PREMEDICATION
     Dosage: UNK

REACTIONS (2)
  - Potentiating drug interaction [Recovered/Resolved]
  - Inappropriate antidiuretic hormone secretion [Recovered/Resolved]
